FAERS Safety Report 7445479-6 (Version None)
Quarter: 2011Q2

REPORT INFORMATION
  Report Type: 
  Country: None (occurrence: None)
  Receive Date: 20110429
  Receipt Date: 20110416
  Transmission Date: 20111010
  Serious: No
  Sender: FDA-Public Use
  Company Number: US-B.I. PHARMACEUTICALS,INC./RIDGEFIELD-2011-BP-11094BP

PATIENT
  Age: 77 Year
  Sex: Female

DRUGS (5)
  1. PRAZOSIN HCL [Concomitant]
     Indication: HYPERTENSION
  2. COMBIVENT [Suspect]
     Indication: BRONCHITIS
     Route: 055
     Dates: start: 20110327
  3. OXYBUTYNIN [Concomitant]
     Indication: POLLAKIURIA
  4. SIMVASTATIN [Concomitant]
     Indication: BLOOD CHOLESTEROL INCREASED
  5. METOPROLOL [Concomitant]
     Indication: HYPERTENSION

REACTIONS (4)
  - TREMOR [None]
  - CHROMATURIA [None]
  - POLLAKIURIA [None]
  - DRY MOUTH [None]
